FAERS Safety Report 5079250-X (Version None)
Quarter: 2006Q3

REPORT INFORMATION
  Report Type: 
  Country: None (occurrence: None)
  Receive Date: 20060814
  Receipt Date: 20060728
  Transmission Date: 20061208
  Serious: Yes (Death, Life-Threatening, Hospitalization)
  Sender: FDA-Public Use
  Company Number: JP-MERCK-0608USA00595

PATIENT
  Age: 76 Year
  Sex: Male
  Weight: 50 kg

DRUGS (6)
  1. FOSAMAX [Suspect]
     Indication: OSTEOPOROSIS
     Route: 048
     Dates: start: 20040320, end: 20050916
  2. ARAVA [Suspect]
     Indication: RHEUMATOID ARTHRITIS
     Route: 048
     Dates: start: 20040320, end: 20040413
  3. ARAVA [Suspect]
     Route: 048
     Dates: start: 20040414, end: 20050916
  4. GASTER D [Concomitant]
     Indication: PROPHYLAXIS AGAINST GASTROINTESTINAL ULCER
     Route: 048
     Dates: start: 20040320, end: 20050916
  5. PROMAC [Concomitant]
     Indication: PROPHYLAXIS
     Route: 048
     Dates: start: 20040320, end: 20050906
  6. PREDNISOLONE [Suspect]
     Indication: INFLAMMATION
     Route: 048
     Dates: start: 20050305, end: 20050916

REACTIONS (5)
  - DRUG INTERACTION [None]
  - NASOPHARYNGITIS [None]
  - PANCREATIC CARCINOMA [None]
  - RESPIRATORY FAILURE [None]
  - RESPIRATORY TRACT INFECTION [None]
